FAERS Safety Report 5299718-0 (Version None)
Quarter: 2007Q2

REPORT INFORMATION
  Report Type: 
  Country: None (occurrence: None)
  Receive Date: 20070410
  Receipt Date: 20070402
  Transmission Date: 20071010
  Serious: No
  Sender: FDA-Public Use
  Company Number: 2007AL001334

PATIENT
  Age: 54 Year
  Sex: Male

DRUGS (12)
  1. RANITIDINE SYRUP (RANITIDINE ORAL SOLUTION USP), 15 MG/ML (MALLC) (RAN [Suspect]
     Indication: PREMEDICATION
     Dosage: 150 MG;X1;PO
     Route: 048
     Dates: start: 20070222, end: 20070222
  2. KETOPROFEN [Concomitant]
  3. TRAMADOL HCL [Concomitant]
  4. MIDAZOLAM HCL [Concomitant]
  5. PROPOFOL [Concomitant]
  6. REMIFENTANIL [Concomitant]
  7. DEXAMETHASONE 0.5MG TAB [Concomitant]
  8. FELODIPINE [Concomitant]
  9. PARACETAMOL [Concomitant]
  10. IBUPROFEN [Concomitant]
  11. CHLORPHENIRAMINE MALEATE [Concomitant]
  12. OXYGEN [Concomitant]

REACTIONS (4)
  - DIARRHOEA [None]
  - HYPOTENSION [None]
  - PO2 DECREASED [None]
  - VOMITING [None]
